FAERS Safety Report 7604579-8 (Version None)
Quarter: 2011Q3

REPORT INFORMATION
  Report Type: 
  Country: None (occurrence: None)
  Receive Date: 20110712
  Receipt Date: 20110707
  Transmission Date: 20111222
  Serious: Yes (Hospitalization, Other)
  Sender: FDA-Public Use
  Company Number: US-PFIZER INC-2011093798

PATIENT
  Age: 67 Year
  Sex: Female

DRUGS (2)
  1. ATENOLOL [Concomitant]
     Indication: HYPERTENSION
     Dosage: UNK
     Dates: start: 20000101, end: 20100101
  2. CHANTIX [Suspect]
     Indication: SMOKING CESSATION THERAPY
     Dosage: UNK
     Dates: start: 20080612, end: 20080904

REACTIONS (7)
  - DEPRESSION [None]
  - SUICIDAL IDEATION [None]
  - CONDITION AGGRAVATED [None]
  - MENTAL DISORDER [None]
  - ANXIETY [None]
  - MOOD SWINGS [None]
  - BIPOLAR DISORDER [None]
